FAERS Safety Report 5908927-6 (Version None)
Quarter: 2008Q4

REPORT INFORMATION
  Report Type: 
  Country: None (occurrence: None)
  Receive Date: 20081006
  Receipt Date: 20080930
  Transmission Date: 20090506
  Serious: Yes (Hospitalization)
  Sender: FDA-Public Use
  Company Number: US-ELI_LILLY_AND_COMPANY-US200810000186

PATIENT
  Sex: Female

DRUGS (2)
  1. HUMALOG [Suspect]
     Indication: DIABETES MELLITUS
     Dosage: UNK, UNK
     Dates: start: 20080701
  2. HUMALOG [Suspect]
     Dosage: UNK, UNK
     Dates: start: 20080930

REACTIONS (6)
  - ANAEMIA [None]
  - ANGER [None]
  - CARDIAC FAILURE CONGESTIVE [None]
  - HYPERHIDROSIS [None]
  - PNEUMONIA [None]
  - VISUAL IMPAIRMENT [None]
